FAERS Safety Report 4774729-X (Version None)
Quarter: 2005Q3

REPORT INFORMATION
  Report Type: 
  Country: None (occurrence: None)
  Receive Date: 20050921
  Receipt Date: 20050915
  Transmission Date: 20060218
  Serious: Yes (Other)
  Sender: FDA-Public Use
  Company Number: CA-GLAXOSMITHKLINE-A0574945A

PATIENT
  Sex: Female

DRUGS (8)
  1. WELLBUTRIN SR [Suspect]
     Indication: DRUG USE FOR UNKNOWN INDICATION
     Route: 048
  2. BUPROPION [Suspect]
     Indication: DRUG USE FOR UNKNOWN INDICATION
     Dosage: 150MG PER DAY
     Route: 048
  3. DOMPERIDONE [Concomitant]
  4. INDAPAMIDE [Concomitant]
  5. LIPITOR [Concomitant]
  6. MICARDIS [Concomitant]
  7. NEXIUM [Concomitant]
  8. RELAFEN [Concomitant]

REACTIONS (2)
  - MOOD SWINGS [None]
  - SELF-INJURIOUS IDEATION [None]
